FAERS Safety Report 23290445 (Version 1)
Quarter: 2023Q4

REPORT INFORMATION
  Report Type: Spontaneous
  Country: BR (occurrence: BR)
  Receive Date: 20231213
  Receipt Date: 20231213
  Transmission Date: 20240110
  Serious: Yes (Other)
  Sender: FDA-Public Use
  Company Number: BR-AMGEN-BRASP2023216789

PATIENT
  Age: 32 Year
  Sex: Male

DRUGS (6)
  1. FILGRASTIM [Suspect]
     Active Substance: FILGRASTIM
     Indication: Haematopoietic stem cell mobilisation
     Dosage: UNK
     Route: 065
  2. PLERIXAFOR [Concomitant]
     Active Substance: PLERIXAFOR
  3. CARMUSTINE [Concomitant]
     Active Substance: CARMUSTINE
  4. ETOPOSIDE [Concomitant]
     Active Substance: ETOPOSIDE
  5. CYTARABINE [Concomitant]
     Active Substance: CYTARABINE
  6. CYCLOPHOSPHAMIDE [Concomitant]
     Active Substance: CYCLOPHOSPHAMIDE

REACTIONS (5)
  - Engraftment syndrome [Recovering/Resolving]
  - Acute respiratory failure [Recovering/Resolving]
  - Cellulitis [Recovering/Resolving]
  - Blood bilirubin increased [Recovering/Resolving]
  - Weight increased [Recovering/Resolving]
